FAERS Safety Report 14410182 (Version 1)
Quarter: 2018Q1

REPORT INFORMATION
  Report Type: Spontaneous
  Country: US (occurrence: US)
  Receive Date: 20180119
  Receipt Date: 20180119
  Transmission Date: 20180509
  Serious: Yes (Hospitalization)
  Sender: FDA-Public Use
  Company Number: US-ENDO PHARMACEUTICALS INC-2018-014304

PATIENT
  Age: 39 Year
  Sex: Male

DRUGS (3)
  1. METHYLPREDNISOLONE. [Suspect]
     Active Substance: METHYLPREDNISOLONE
     Indication: MYOFASCIAL PAIN SYNDROME
     Dosage: UNK UNK, UNKNOWN, TRIGGER POINT INJECTION
  2. BUPIVACAINE. [Suspect]
     Active Substance: BUPIVACAINE
     Indication: MYOFASCIAL PAIN SYNDROME
     Dosage: UNK UNK, UNKNOWN, TRIGGER POINT INJECTION
  3. ADRENALIN [Suspect]
     Active Substance: EPINEPHRINE
     Indication: MYOFASCIAL PAIN SYNDROME
     Dosage: UNK UNK, UNKNOWN, TRIGGER POINT INJECTION

REACTIONS (4)
  - Metabolic acidosis [Unknown]
  - Paralysis [Recovered/Resolved]
  - Off label use [Unknown]
  - Hypokalaemia [Recovered/Resolved]
